FAERS Safety Report 5498529-0 (Version None)
Quarter: 2007Q4

REPORT INFORMATION
  Report Type: 
  Country: None (occurrence: None)
  Receive Date: 20071026
  Receipt Date: 20071018
  Transmission Date: 20080405
  Serious: Yes (Other)
  Sender: FDA-Public Use
  Company Number: PHHO2007JP10205

PATIENT
  Sex: Male

DRUGS (1)
  1. SALAGEN [Suspect]
     Indication: DRY MOUTH
     Dosage: 5 MG, TID
     Route: 048
     Dates: start: 20070327, end: 20070329

REACTIONS (2)
  - ABDOMINAL PAIN LOWER [None]
  - URINARY RETENTION [None]
